FAERS Safety Report 8485848 (Version 7)
Quarter: 2013Q4

REPORT INFORMATION
  Report Type: Spontaneous
  Country: US (occurrence: US)
  Receive Date: 20120330
  Receipt Date: 20131231
  Transmission Date: 20140711
  Serious: Yes (Hospitalization, Disabling, Other)
  Sender: FDA-Public Use
  Company Number: US-009507513-1203USA03313

PATIENT
  Sex: Female
  Weight: 65.32 kg

DRUGS (15)
  1. FOSAMAX [Suspect]
     Indication: OSTEOPOROSIS
     Dosage: UNK
     Route: 048
     Dates: start: 19980713
  2. FOSAMAX [Suspect]
     Indication: OSTEOPENIA
     Dosage: 10 MG, QD
     Route: 048
     Dates: start: 19980810
  3. FOSAMAX [Suspect]
     Dosage: 70 MG, QW
     Route: 048
     Dates: end: 2010
  4. FOSAMAX [Suspect]
     Dosage: 70 MG, QD
     Route: 048
  5. CADUET [Concomitant]
     Indication: HYPERTENSION
     Dosage: 5/20
     Route: 048
     Dates: end: 201005
  6. CADUET [Concomitant]
     Indication: BLOOD CHOLESTEROL
  7. AVALIDE [Concomitant]
     Indication: HYPERTENSION
     Dosage: 300/12.5
     Route: 048
     Dates: start: 20090501
  8. AVALIDE [Concomitant]
     Indication: BLOOD PRESSURE
  9. AVAPRO [Concomitant]
     Indication: HYPERTENSION
  10. METOPROLOL [Concomitant]
     Indication: HYPERTENSION
     Dosage: 25 MG, UNK
     Route: 048
  11. AMLODIPINE [Concomitant]
     Indication: BLOOD PRESSURE
  12. ALLEGRA [Concomitant]
  13. CRESTOR [Concomitant]
     Indication: BLOOD CHOLESTEROL
  14. CALCIUM (UNSPECIFIED) [Concomitant]
     Indication: OSTEOPOROSIS
     Dosage: 1200 MG, QD
  15. VITAMIN D (UNSPECIFIED) [Concomitant]
     Indication: OSTEOPOROSIS
     Dosage: 800 IU, UNK

REACTIONS (59)
  - Femur fracture [Not Recovered/Not Resolved]
  - Osteoporosis [Unknown]
  - Stress fracture [Unknown]
  - Femur fracture [Unknown]
  - Bone density decreased [Unknown]
  - Femur fracture [Not Recovered/Not Resolved]
  - Device failure [Unknown]
  - Hip fracture [Unknown]
  - Ventricular extrasystoles [Unknown]
  - Hypokalaemia [Unknown]
  - Haemorrhagic anaemia [Unknown]
  - Hypomagnesaemia [Unknown]
  - Sinus tachycardia [Unknown]
  - Hepatic enzyme increased [Unknown]
  - Dehydration [Unknown]
  - Fall [Unknown]
  - Anaemia [Unknown]
  - Staphylococcal infection [Unknown]
  - Hypotension [Unknown]
  - Sinus tachycardia [Unknown]
  - Bursa calcification [Unknown]
  - Orthostatic hypotension [Unknown]
  - Tachycardia [Unknown]
  - Extrasystoles [Unknown]
  - Fracture malunion [Unknown]
  - Tooth disorder [Unknown]
  - Tooth disorder [Unknown]
  - Tooth disorder [Unknown]
  - Tooth disorder [Unknown]
  - Hyperlipidaemia [Unknown]
  - Adverse event [Unknown]
  - Overdose [Unknown]
  - Bursitis [Unknown]
  - Extrasystoles [Unknown]
  - Cataract [Unknown]
  - Eye disorder [Unknown]
  - Bursitis [Unknown]
  - Differential white blood cell count abnormal [Unknown]
  - Osteoarthritis [Unknown]
  - Trigger finger [Unknown]
  - Bursitis [Unknown]
  - Osteosclerosis [Unknown]
  - Gait disturbance [Unknown]
  - Osteoarthritis [Unknown]
  - Gout [Unknown]
  - Incisional drainage [Unknown]
  - Ecchymosis [Unknown]
  - Cystocele [Unknown]
  - Rectocele [Unknown]
  - Blister [Unknown]
  - Dysuria [Unknown]
  - Vaginismus [Unknown]
  - Menopausal disorder [Unknown]
  - Ventricular extrasystoles [Unknown]
  - Drug ineffective [Unknown]
  - Nausea [Unknown]
  - Constipation [Unknown]
  - Flatulence [Unknown]
  - Arthralgia [Unknown]
